FAERS Safety Report 6420700-1 (Version None)
Quarter: 2009Q4

REPORT INFORMATION
  Report Type: 
  Country: None (occurrence: None)
  Receive Date: 20091027
  Receipt Date: 20050809
  Transmission Date: 20100525
  Serious: Yes (Hospitalization)
  Sender: FDA-Public Use
  Company Number: 2009009128

PATIENT
  Sex: Male

DRUGS (4)
  1. ACTIQ [Suspect]
     Indication: ARTHRITIS
     Dosage: 3200 MG (800 MG,4 IN 1 D),BU
     Route: 002
     Dates: start: 20050501
  2. ACTIQ [Suspect]
     Indication: BACK PAIN
     Dosage: 3200 MG (800 MG,4 IN 1 D),BU
     Route: 002
     Dates: start: 20050501
  3. ACTIQ [Suspect]
     Indication: OSTEOPOROSIS
     Dosage: 3200 MG (800 MG,4 IN 1 D),BU
     Route: 002
     Dates: start: 20050501
  4. FENTANYL-100 [Concomitant]

REACTIONS (4)
  - ARTHRITIS BACTERIAL [None]
  - BLOOD CULTURE POSITIVE [None]
  - CELLULITIS [None]
  - STAPHYLOCOCCAL INFECTION [None]
